FAERS Safety Report 9182697 (Version 3)
Quarter: 2013Q4

REPORT INFORMATION
  Report Type: Spontaneous
  Country: US (occurrence: US)
  Receive Date: 20121031
  Receipt Date: 20131118
  Transmission Date: 20140711
  Serious: Yes (Other)
  Sender: FDA-Public Use
  Company Number: US-RB-046051-12

PATIENT
  Age: 3 Year
  Sex: Female

DRUGS (1)
  1. SUBOXONE TABLET [Suspect]
     Indication: PRODUCT USED FOR UNKNOWN INDICATION
     Dosage: TOOK ONE 8 MG TABLET ONE TIME
     Route: 048
     Dates: start: 2007, end: 2007

REACTIONS (5)
  - Loss of consciousness [Recovered/Resolved]
  - Accidental exposure to product by child [Recovered/Resolved]
  - Learning disorder [Not Recovered/Not Resolved]
  - Abnormal behaviour [Not Recovered/Not Resolved]
  - Anger [Not Recovered/Not Resolved]
